FAERS Safety Report 19501343 (Version 2)
Quarter: 2022Q3

REPORT INFORMATION
  Report Type: Spontaneous
  Country: FR (occurrence: FR)
  Receive Date: 20210707
  Receipt Date: 20220920
  Transmission Date: 20221027
  Serious: Yes (Life-Threatening, Hospitalization)
  Sender: FDA-Public Use
  Company Number: FR-AFSSAPS-SE20211491

PATIENT
  Age: 71 Year
  Sex: Female
  Weight: 62 kg

DRUGS (1)
  1. ALLOPURINOL [Suspect]
     Active Substance: ALLOPURINOL
     Indication: Hyperuricaemia
     Dosage: 100 MILLIGRAM, DAILY
     Route: 048
     Dates: start: 20210521, end: 20210601

REACTIONS (1)
  - Haemophagocytic lymphohistiocytosis [Recovered/Resolved with Sequelae]

NARRATIVE: CASE EVENT DATE: 20210531
